FAERS Safety Report 18073982 (Version 1)
Quarter: 2020Q3

REPORT INFORMATION
  Report Type: Spontaneous
  Country: US (occurrence: US)
  Receive Date: 20200727
  Receipt Date: 20200727
  Transmission Date: 20201103
  Serious: Yes (Hospitalization, Other)
  Sender: FDA-Public Use
  Company Number: US-PURDUE-USA-2020-0159045

PATIENT
  Sex: Female

DRUGS (2)
  1. OXYCONTIN [Suspect]
     Active Substance: OXYCODONE HYDROCHLORIDE
     Indication: SPINAL OPERATION
     Dosage: UNK
     Route: 048
  2. OXYCONTIN [Suspect]
     Active Substance: OXYCODONE HYDROCHLORIDE
     Indication: NECK SURGERY

REACTIONS (7)
  - Gait inability [Unknown]
  - Unresponsive to stimuli [Unknown]
  - Mental impairment [Unknown]
  - Speech disorder [Unknown]
  - Balance disorder [Unknown]
  - General physical health deterioration [Unknown]
  - Amnesia [Unknown]

NARRATIVE: CASE EVENT DATE: 20200428
